FAERS Safety Report 4398803-5 (Version None)
Quarter: 2004Q3

REPORT INFORMATION
  Report Type: 
  Country: None (occurrence: None)
  Receive Date: 20040712
  Receipt Date: 20040701
  Transmission Date: 20050211
  Serious: Yes (Life-Threatening, Hospitalization)
  Sender: FDA-Public Use
  Company Number: 2004-BP-05240RO

PATIENT
  Age: 64 Year
  Sex: Male

DRUGS (15)
  1. PREDNISONE TAB [Suspect]
     Indication: MANTLE CELL LYMPHOMA
     Dosage: 100 MG/DAY FOR 5 DAYS (R-CHOP 1 CYCLE 21 DAYS) PO
     Route: 048
     Dates: start: 20030404
  2. GENASENSE [Suspect]
     Indication: MANTLE CELL LYMPHOMA
     Dosage: 3 MG/KG/DAY (7 DAY CYCLE EVERY 21 DAYS) IV
     Route: 042
     Dates: start: 20030321
  3. RITUXIMAB (RITUXIMAB) [Suspect]
     Indication: MANTLE CELL LYMPHOMA
     Dosage: 375 MG/M2 (R-CHOP 1 CYCLE EVERY 21 DAYS) IV
     Route: 042
     Dates: start: 20030404
  4. CYCLOPHOSPHAMIDE [Suspect]
     Indication: MANTLE CELL LYMPHOMA
     Dosage: 750 MG/M2 (R-CHOP 1 CYCLE EVERY 21 DAYS) IV
     Route: 042
     Dates: start: 20030404
  5. DOXORUBICIN HCL [Suspect]
     Indication: MANTLE CELL LYMPHOMA
     Dosage: 40 MG/M2 (R-CHOP 1 CYCLE EVERY 21 DAYS) IV
     Route: 042
     Dates: start: 20030404
  6. VINCRISTINE [Suspect]
     Indication: MANTLE CELL LYMPHOMA
     Dosage: 1.4 MG/M2 (R-CHOP 1 CYCLE EVERY 21 DAYS) IV
     Route: 042
     Dates: start: 20030404
  7. ACETAMINOPHEN [Concomitant]
  8. CHLORPROMAZINE [Concomitant]
  9. DOLASETRON MESYLATE (DOLASETRON MESILATE) [Concomitant]
  10. FEXOFENADINE HCL [Concomitant]
  11. LEVOFLOXACIN [Concomitant]
  12. LORAZEPAM [Concomitant]
  13. PROCHLORPERAZINE [Concomitant]
  14. SENNA EXTRACT (SENNA) [Concomitant]
  15. WARFARIN (WARFARIN) [Concomitant]

REACTIONS (5)
  - ASTHENIA [None]
  - CHILLS [None]
  - FEBRILE NEUTROPENIA [None]
  - MEDICAL DEVICE COMPLICATION [None]
  - WHITE BLOOD CELL COUNT INCREASED [None]
